FAERS Safety Report 8053894-5 (Version None)
Quarter: 2012Q1

REPORT INFORMATION
  Report Type: 
  Country: None (occurrence: None)
  Receive Date: 20120118
  Receipt Date: 20120111
  Transmission Date: 20120608
  Serious: Yes (Death)
  Sender: FDA-Public Use
  Company Number: VE-ELI_LILLY_AND_COMPANY-VE201201003744

PATIENT
  Age: 73 Year
  Sex: Male

DRUGS (2)
  1. HUMALOG MIX 75/25 [Suspect]
     Indication: TYPE 2 DIABETES MELLITUS
     Dosage: 20 U, EACH MORNING
     Dates: start: 20111103, end: 20111231
  2. HUMALOG MIX 75/25 [Suspect]
     Dosage: 12 U, EACH EVENING
     Dates: start: 20111103, end: 20111231

REACTIONS (4)
  - CARDIO-RESPIRATORY ARREST [None]
  - BLOOD GLUCAGON DECREASED [None]
  - HEPATIC NEOPLASM MALIGNANT [None]
  - PANCREATIC CARCINOMA [None]
